FAERS Safety Report 25288155 (Version 2)
Quarter: 2025Q2

REPORT INFORMATION
  Report Type: Spontaneous
  Country: US (occurrence: US)
  Receive Date: 20250509
  Receipt Date: 20250513
  Transmission Date: 20250717
  Serious: No
  Sender: JOHNSON AND JOHNSON
  Company Number: US-JNJFOC-20250510751

PATIENT
  Sex: Male

DRUGS (3)
  1. SPRAVATO [Suspect]
     Active Substance: ESKETAMINE
     Indication: Product used for unknown indication
     Route: 045
  2. ROBAXIN [Interacting]
     Active Substance: METHOCARBAMOL
  3. ROBAXIN [Interacting]
     Active Substance: METHOCARBAMOL

REACTIONS (7)
  - Hypoaesthesia [Unknown]
  - Malaise [Unknown]
  - Drug interaction [Unknown]
  - Irritability [Unknown]
  - Mood altered [Unknown]
  - Anger [Unknown]
  - Depressed mood [Unknown]
